FAERS Safety Report 12451033 (Version 1)
Quarter: 2016Q2

REPORT INFORMATION
  Report Type: Spontaneous
  Country: US (occurrence: US)
  Receive Date: 20160609
  Receipt Date: 20160609
  Transmission Date: 20160815
  Serious: Yes (Other)
  Sender: FDA-Public Use
  Company Number: US-NOVOPROD-495179

PATIENT
  Age: 55 Year
  Sex: Female
  Weight: 67.57 kg

DRUGS (1)
  1. LEVEMIR [Suspect]
     Active Substance: INSULIN DETEMIR
     Indication: PRODUCT USED FOR UNKNOWN INDICATION
     Route: 058

REACTIONS (6)
  - Multiple sclerosis [Unknown]
  - Uveitis [Unknown]
  - Weight decreased [Unknown]
  - Depression [Unknown]
  - Arthropathy [Unknown]
  - Cerebrovascular accident [Unknown]
